FAERS Safety Report 21921366 (Version 1)
Quarter: 2023Q1

REPORT INFORMATION
  Report Type: Spontaneous
  Country: US (occurrence: US)
  Receive Date: 20230127
  Receipt Date: 20230127
  Transmission Date: 20230417
  Serious: No
  Sender: FDA-Public Use
  Company Number: US-GE HEALTHCARE-2022CSU008299

PATIENT
  Sex: Female

DRUGS (2)
  1. DATSCAN [Suspect]
     Active Substance: IODINE\IOFLUPANE I-123
     Indication: Diagnostic procedure
     Dosage: UNK UNK, SINGLE
     Route: 065
  2. DATSCAN [Suspect]
     Active Substance: IODINE\IOFLUPANE I-123
     Indication: Dementia with Lewy bodies

REACTIONS (2)
  - Radioisotope scan abnormal [Recovered/Resolved]
  - No adverse event [Recovered/Resolved]
